FAERS Safety Report 12923950 (Version 1)
Quarter: 2016Q4

REPORT INFORMATION
  Report Type: Spontaneous
  Country: US (occurrence: US)
  Receive Date: 20161109
  Receipt Date: 20161109
  Transmission Date: 20170207
  Serious: Yes (Life-Threatening, Hospitalization, Disabling, Other)
  Sender: FDA-Public Use
  Company Number: None

PATIENT
  Age: 37 Year
  Sex: Female
  Weight: 143.46 kg

DRUGS (10)
  1. BEE POLLEN [Concomitant]
     Active Substance: BEE POLLEN
  2. DEPAKOTE [Suspect]
     Active Substance: DIVALPROEX SODIUM
     Indication: BIPOLAR DISORDER
     Dosage: 1 IN AM/500MG, 2 IN NIGHT/50+500MG TWICE DAILY BY MOUTH
     Route: 048
     Dates: start: 20120101, end: 20120101
  3. VITAMIN B COMPLEX [Concomitant]
     Active Substance: CYANOCOBALAMIN\DEXPANTHENOL\NIACINAMIDE\PYRIDOXINE HYDROCHLORIDE\RIBOFLAVIN 5^-PHOSPHATE SODIUM\THIAMINE HYDROCHLORIDE\VITAMIN B COMPLEX
  4. DEPAKOTE [Suspect]
     Active Substance: DIVALPROEX SODIUM
     Indication: POST-TRAUMATIC STRESS DISORDER
     Dosage: 1 IN AM/500MG, 2 IN NIGHT/50+500MG TWICE DAILY BY MOUTH
     Route: 048
     Dates: start: 20120101, end: 20120101
  5. CALCIUM [Concomitant]
     Active Substance: CALCIUM
  6. I-B PROFIN [Concomitant]
  7. MULTIVITAMIN [Concomitant]
     Active Substance: VITAMINS
  8. INHALER [Concomitant]
     Active Substance: UNSPECIFIED INGREDIENT
  9. EMERGEN C [Concomitant]
     Active Substance: MINERALS\VITAMINS
  10. MEDICAL MARIJUANNA [Concomitant]

REACTIONS (14)
  - Depressed mood [None]
  - Swelling [None]
  - Adnexa uteri pain [None]
  - Uterine pain [None]
  - Overdose [None]
  - Sedation [None]
  - Hyperhidrosis [None]
  - Fatigue [None]
  - Hair growth abnormal [None]
  - Urinary tract disorder [None]
  - Oedema [None]
  - Alopecia [None]
  - Weight increased [None]
  - Drooling [None]

NARRATIVE: CASE EVENT DATE: 20050101
